FAERS Safety Report 17445975 (Version 4)
Quarter: 2020Q3

REPORT INFORMATION
  Report Type: Report from Study
  Country: US (occurrence: US)
  Receive Date: 20200221
  Receipt Date: 20200708
  Transmission Date: 20201102
  Serious: Yes (Hospitalization, Other)
  Sender: FDA-Public Use
  Company Number: US-PFIZER INC-2019546498

PATIENT
  Age: 45 Year
  Sex: Female

DRUGS (3)
  1. IBRANCE [Suspect]
     Active Substance: PALBOCICLIB
     Indication: BREAST CANCER FEMALE
     Dosage: 125 MG, CYCLIC (DAILY, 21 DAYS ON, 7 DAYS OFF)
     Route: 048
     Dates: start: 20191212, end: 20200110
  2. IBRANCE [Suspect]
     Active Substance: PALBOCICLIB
     Dosage: 125 MG, CYCLIC (CYCLE 21 DAYS ON, 7 DAYS OFF)
     Dates: start: 201912, end: 202004
  3. IBRANCE [Suspect]
     Active Substance: PALBOCICLIB
     Dosage: 125 MG, CYCLIC (CYCLE 21 DAYS ON, 7 DAYS OFF)
     Route: 048
     Dates: start: 20200617

REACTIONS (10)
  - COVID-19 [Recovered/Resolved]
  - White blood cell count decreased [Not Recovered/Not Resolved]
  - Intentional product use issue [Unknown]
  - Neoplasm progression [Unknown]
  - Epistaxis [Unknown]
  - Bowel movement irregularity [Recovered/Resolved]
  - Dyspnoea [Unknown]
  - Haematochezia [Recovered/Resolved]
  - Condition aggravated [Unknown]
  - Neuropathy peripheral [Unknown]

NARRATIVE: CASE EVENT DATE: 2020
